FAERS Safety Report 4337945-7 (Version None)
Quarter: 2004Q2

REPORT INFORMATION
  Report Type: 
  Country: None (occurrence: None)
  Receive Date: 20040408
  Receipt Date: 20040401
  Transmission Date: 20050107
  Serious: No
  Sender: FDA-Public Use
  Company Number: 2004UW06558

PATIENT
  Sex: Female

DRUGS (6)
  1. SYMBICORT TURBUHALER ^ASTRANZENECA^ [Suspect]
     Indication: ASTHMA
     Dosage: 200 UG PRN IH
     Route: 055
     Dates: start: 20040324, end: 20040401
  2. SYMBICORT TURBUHALER ^ASTRAZENECA^ [Suspect]
     Indication: ASTHMA
     Dosage: 200 UG IH
     Route: 055
     Dates: start: 20040401, end: 20040402
  3. PANNTOLOC ^BYK GULDEN^ [Concomitant]
  4. SALOFALK ^ADVENTIS^ [Concomitant]
  5. AMILORIDE [Concomitant]
  6. ASPIRIN [Concomitant]

REACTIONS (3)
  - EPISTAXIS [None]
  - EYE HAEMORRHAGE [None]
  - HEADACHE [None]
